FAERS Safety Report 6258114-X (Version None)
Quarter: 2009Q3

REPORT INFORMATION
  Report Type: 
  Country: None (occurrence: None)
  Receive Date: 20090702
  Receipt Date: 20090702
  Transmission Date: 20100115
  Serious: Yes (Hospitalization)
  Sender: FDA-Public Use
  Company Number: None

PATIENT
  Sex: Male
  Weight: 79.7 kg

DRUGS (2)
  1. AZACITIDINE [Suspect]
     Indication: ACUTE MYELOID LEUKAEMIA
     Dosage: 75MG/M2 QD S/C
     Route: 058
     Dates: start: 20090424, end: 20090430
  2. LENALIDOMIDE [Suspect]
     Dosage: 5 MG QD PO
     Route: 048
     Dates: start: 20090522, end: 20090529

REACTIONS (5)
  - FEBRILE NEUTROPENIA [None]
  - HYPERHIDROSIS [None]
  - OEDEMA PERIPHERAL [None]
  - OXYGEN SATURATION DECREASED [None]
  - RESPIRATORY RATE INCREASED [None]
